FAERS Safety Report 10360369 (Version 1)
Quarter: 2014Q3

REPORT INFORMATION
  Report Type: Spontaneous
  Country: US (occurrence: US)
  Receive Date: 20140804
  Receipt Date: 20140804
  Transmission Date: 20150326
  Serious: Yes (Other)
  Sender: FDA-Public Use
  Company Number: US-BAYER-2014-112169

PATIENT
  Sex: Female

DRUGS (1)
  1. MIRENA [Suspect]
     Active Substance: LEVONORGESTREL
     Dosage: 20 ?G/D, CONT
     Route: 015
     Dates: start: 2011

REACTIONS (8)
  - Musculoskeletal stiffness [Recovering/Resolving]
  - Headache [Recovered/Resolved]
  - Antinuclear antibody positive [Recovering/Resolving]
  - Arthralgia [Recovered/Resolved]
  - Weight increased [Recovering/Resolving]
  - Mood altered [Recovering/Resolving]
  - Asthenia [Recovering/Resolving]
  - Mobility decreased [Recovering/Resolving]

NARRATIVE: CASE EVENT DATE: 2011
